FAERS Safety Report 7328483-8 (Version None)
Quarter: 2011Q1

REPORT INFORMATION
  Report Type: 
  Country: None (occurrence: None)
  Receive Date: 20110303
  Receipt Date: 20110223
  Transmission Date: 20110831
  Serious: Yes (Hospitalization)
  Sender: FDA-Public Use
  Company Number: JP-TEVA-236088ISR

PATIENT
  Sex: Male
  Weight: 59.2 kg

DRUGS (9)
  1. LANSOPRAZOLE [Concomitant]
  2. CISPLATIN [Suspect]
     Dates: start: 20100510
  3. CAPECITABINE [Suspect]
     Indication: GASTRIC CANCER
     Route: 048
     Dates: start: 20100413, end: 20100426
  4. ANTIXIB [Suspect]
     Indication: GASTRIC CANCER
     Route: 048
     Dates: start: 20100410, end: 20100507
  5. ANTIXIB [Suspect]
     Dates: start: 20100510
  6. BISACODYL [Concomitant]
  7. LEVOTHYROXINE SODIUM [Concomitant]
     Dates: start: 20100419
  8. CISPLATIN [Suspect]
     Indication: GASTRIC CANCER
     Route: 042
     Dates: start: 20100413, end: 20100413
  9. CAPECITABINE [Suspect]
     Dates: start: 20100510

REACTIONS (1)
  - GASTROINTESTINAL PERFORATION [None]
